FAERS Safety Report 21451118 (Version 1)
Quarter: 2022Q4

REPORT INFORMATION
  Report Type: Spontaneous
  Country: CN (occurrence: CN)
  Receive Date: 20221013
  Receipt Date: 20221013
  Transmission Date: 20230113
  Serious: Yes (Life-Threatening, Hospitalization, Other)
  Sender: FDA-Public Use
  Company Number: CN-CELGENE-CHN-20200503312

PATIENT
  Age: 50 Year
  Sex: Male
  Weight: 75 kg

DRUGS (21)
  1. ABRAXANE [Suspect]
     Active Substance: PACLITAXEL
     Indication: Non-small cell lung cancer
     Dosage: FREQUENCY TEXT: DAY 1, 8, 15 OF EACH 21 DAY CYCLE
     Route: 042
     Dates: start: 20200415, end: 20200415
  2. ABRAXANE [Suspect]
     Active Substance: PACLITAXEL
     Dosage: FREQUENCY TEXT: DAY 1, 8, 15 OF EACH 21 DAY CYCLE
     Route: 042
     Dates: start: 20200422, end: 20200422
  3. ABRAXANE [Suspect]
     Active Substance: PACLITAXEL
     Dosage: FREQUENCY TEXT: DAY 1, 8, 15 OF EACH 21 DAY CYCLE
     Route: 042
     Dates: start: 20200429, end: 20200429
  4. ABRAXANE [Suspect]
     Active Substance: PACLITAXEL
     Dosage: FREQUENCY TEXT: DAY 1, 8, 15 OF EACH 21 DAY CYCLE
     Route: 042
     Dates: start: 20200615
  5. ABRAXANE [Suspect]
     Active Substance: PACLITAXEL
     Route: 065
  6. ABRAXANE [Suspect]
     Active Substance: PACLITAXEL
     Route: 065
  7. CARBOPLATIN [Suspect]
     Active Substance: CARBOPLATIN
     Indication: Non-small cell lung cancer
     Dosage: AUC=5, ONCE EVERY 21 DAYS
     Route: 042
     Dates: start: 20200415, end: 20200415
  8. CARBOPLATIN [Suspect]
     Active Substance: CARBOPLATIN
     Route: 042
     Dates: start: 20200615
  9. CARBOPLATIN [Suspect]
     Active Substance: CARBOPLATIN
     Route: 065
  10. SERPLULIMAB [Suspect]
     Active Substance: SERPLULIMAB
     Indication: Non-small cell lung cancer
     Dosage: 4.5 MILLIGRAM/KILOGRAM
     Route: 042
     Dates: start: 20200415, end: 20200415
  11. SERPLULIMAB [Suspect]
     Active Substance: SERPLULIMAB
     Route: 065
  12. SERPLULIMAB [Suspect]
     Active Substance: SERPLULIMAB
     Route: 065
  13. SERPLULIMAB [Suspect]
     Active Substance: SERPLULIMAB
     Route: 065
  14. LEVAMLODIPINE BESYLATE [Concomitant]
     Active Substance: LEVAMLODIPINE BESYLATE
     Indication: Hypertension
     Dosage: 2.5 MILLIGRAM
     Route: 048
     Dates: start: 2018
  15. METOPROLOL TARTRATE [Concomitant]
     Active Substance: METOPROLOL TARTRATE
     Indication: Hyperlipidaemia
     Dosage: 25 MILLIGRAM
     Route: 048
     Dates: start: 2018
  16. ATORVASTATIN CALCIUM [Concomitant]
     Active Substance: ATORVASTATIN CALCIUM
     Indication: Hyperlipidaemia
     Dosage: 10 MILLILITER
     Route: 048
     Dates: start: 2018
  17. ASPIRIN [Concomitant]
     Active Substance: ASPIRIN
     Indication: Hyperlipidaemia
     Dosage: 100 MILLIGRAM
     Route: 048
     Dates: start: 2018
  18. PREDNISONE ACETATE [Concomitant]
     Active Substance: PREDNISONE ACETATE
     Indication: Hormone therapy
     Dosage: FREQUENCY TEXT: QD?10 MILLIGRAM
     Route: 048
     Dates: start: 20200522, end: 20200526
  19. PREDNISONE ACETATE [Concomitant]
     Active Substance: PREDNISONE ACETATE
     Dosage: FREQUENCY TEXT: QD?5 MILLIGRAM
     Route: 048
     Dates: start: 20200527, end: 20200531
  20. PREDNISONE ACETATE [Concomitant]
     Active Substance: PREDNISONE ACETATE
     Dosage: FREQUENCY TEXT: AS NEEDED (PRN)
     Route: 048
     Dates: start: 20200601, end: 20200608
  21. INOSINE [Concomitant]
     Active Substance: INOSINE
     Indication: Prophylaxis
     Dosage: DAILY DOSE : 9 TABLET?UNIT DOSE : 3 TABLET?9 TABLET
     Route: 048

REACTIONS (2)
  - Electrolyte imbalance [Not Recovered/Not Resolved]
  - Hepatitis [Recovered/Resolved]

NARRATIVE: CASE EVENT DATE: 20200506
